FAERS Safety Report 20309885 (Version 2)
Quarter: 2022Q1

REPORT INFORMATION
  Report Type: Spontaneous
  Country: CN (occurrence: CN)
  Receive Date: 20220107
  Receipt Date: 20220121
  Transmission Date: 20220423
  Serious: Yes (Life-Threatening, Disabling, Other)
  Sender: FDA-Public Use
  Company Number: CN-SA-SAC20220104000858

PATIENT
  Age: 49 Year
  Sex: Male
  Weight: 86 kg

DRUGS (3)
  1. ENOXAPARIN SODIUM [Suspect]
     Active Substance: ENOXAPARIN SODIUM
     Indication: Arteriosclerosis coronary artery
     Dosage: 600 IU, BID
     Route: 058
     Dates: start: 20211227, end: 20211229
  2. ASPIRIN [Suspect]
     Active Substance: ASPIRIN
     Indication: Arteriosclerosis coronary artery
     Dosage: 0.1 G, QD
     Route: 048
     Dates: start: 20211013, end: 20211229
  3. CLOPIDOGREL BISULFATE [Suspect]
     Active Substance: CLOPIDOGREL BISULFATE
     Indication: Arteriosclerosis coronary artery
     Dosage: 75 MG, QD
     Route: 048
     Dates: start: 20211013, end: 20211229

REACTIONS (1)
  - Gastrointestinal haemorrhage [Recovering/Resolving]

NARRATIVE: CASE EVENT DATE: 20211228
